FAERS Safety Report 6988784-X (Version None)
Quarter: 2010Q3

REPORT INFORMATION
  Report Type: 
  Country: None (occurrence: None)
  Receive Date: 20100916
  Receipt Date: 20100804
  Transmission Date: 20110219
  Serious: Yes (Death, Other)
  Sender: FDA-Public Use
  Company Number: US-BAXTER-2010BH003660

PATIENT
  Age: 71 Year
  Sex: Female

DRUGS (12)
  1. HEPARIN SODIUM INJECTION [Suspect]
     Indication: CORONARY ARTERY BYPASS
     Route: 042
     Dates: start: 20071105, end: 20071227
  2. HEPARIN SODIUM INJECTION [Suspect]
     Route: 042
     Dates: start: 20071105, end: 20071227
  3. HEPARIN SODIUM INJECTION [Suspect]
     Route: 042
     Dates: start: 20071105, end: 20071227
  4. HEPARIN SODIUM INJECTION [Suspect]
     Route: 042
     Dates: start: 20071001, end: 20071101
  5. HEPARIN SODIUM INJECTION [Suspect]
     Route: 042
     Dates: start: 20071105, end: 20071227
  6. COREG [Concomitant]
     Indication: PRODUCT USED FOR UNKNOWN INDICATION
     Route: 065
  7. DIGITEK [Concomitant]
     Indication: PRODUCT USED FOR UNKNOWN INDICATION
     Route: 065
  8. BENICAR [Concomitant]
     Indication: PRODUCT USED FOR UNKNOWN INDICATION
     Route: 065
  9. PRAVACHOL [Concomitant]
     Indication: PRODUCT USED FOR UNKNOWN INDICATION
     Route: 065
  10. LASIX [Concomitant]
     Indication: PRODUCT USED FOR UNKNOWN INDICATION
     Route: 065
  11. LISINOPRIL [Concomitant]
     Indication: PRODUCT USED FOR UNKNOWN INDICATION
     Route: 065
  12. ZYLOPRIM [Concomitant]
     Indication: PRODUCT USED FOR UNKNOWN INDICATION
     Route: 065

REACTIONS (16)
  - ABDOMINAL DISTENSION [None]
  - CARDIAC FAILURE CONGESTIVE [None]
  - CHEST DISCOMFORT [None]
  - COAGULOPATHY [None]
  - HAEMORRHAGE [None]
  - HEPARIN-INDUCED THROMBOCYTOPENIA [None]
  - HYPERHIDROSIS [None]
  - HYPERTENSIVE HEART DISEASE [None]
  - HYPOTENSION [None]
  - NAUSEA [None]
  - PLEURAL EFFUSION [None]
  - RASH [None]
  - RENAL FAILURE [None]
  - VISION BLURRED [None]
  - VOMITING [None]
  - WHEEZING [None]
